FAERS Safety Report 7989166-4 (Version None)
Quarter: 2011Q4

REPORT INFORMATION
  Report Type: 
  Country: None (occurrence: None)
  Receive Date: 20111219
  Receipt Date: 20111214
  Transmission Date: 20120403
  Serious: Yes (Life-Threatening, Hospitalization, Disabling)
  Sender: FDA-Public Use
  Company Number: US-BRISTOL-MYERS SQUIBB COMPANY-16292823

PATIENT
  Age: 66 Year
  Sex: Female
  Weight: 102 kg

DRUGS (14)
  1. COUMADIN [Suspect]
  2. ZOCOR [Concomitant]
  3. CELEBREX [Concomitant]
  4. BUSPAR [Concomitant]
  5. PERCOCET [Concomitant]
  6. ARIXTRA [Suspect]
     Indication: DEEP VEIN THROMBOSIS
     Dosage: ARIXTRA INJECTION
     Route: 058
     Dates: start: 20111024, end: 20111031
  7. PROTONIX [Concomitant]
  8. METFORMIN HCL [Concomitant]
  9. VITAMIN D [Concomitant]
  10. CLARITIN [Concomitant]
  11. LEXAPRO [Concomitant]
  12. POTASSIUM CHLORIDE [Concomitant]
  13. BENEFIBER [Concomitant]
  14. LEVOTHYROXINE SODIUM [Concomitant]

REACTIONS (5)
  - RETROPERITONEAL HAEMORRHAGE [None]
  - INTERNATIONAL NORMALISED RATIO FLUCTUATION [None]
  - BLOOD CREATININE INCREASED [None]
  - HYPOTENSION [None]
  - RENAL IMPAIRMENT [None]
